FAERS Safety Report 24424641 (Version 1)
Quarter: 2024Q4

REPORT INFORMATION
  Report Type: Spontaneous
  Country: CN (occurrence: CN)
  Receive Date: 20241010
  Receipt Date: 20241010
  Transmission Date: 20250114
  Serious: Yes (Other)
  Sender: SANDOZ
  Company Number: CN-SANDOZ-SDZ2024CN086020

PATIENT
  Age: 33 Year
  Sex: Female

DRUGS (5)
  1. CARTEOLOL HYDROCHLORIDE [Suspect]
     Active Substance: CARTEOLOL HYDROCHLORIDE
     Indication: Conjunctivitis allergic
     Dosage: 2 %, BID
     Route: 065
  2. DECADRON (DEXAMETHASONE SODIUM PHOSPHATE) [Suspect]
     Active Substance: DEXAMETHASONE SODIUM PHOSPHATE
     Indication: Conjunctivitis allergic
     Dosage: UNK UNK, TID
     Route: 065
  3. DEXAMETHASONE\TOBRAMYCIN [Suspect]
     Active Substance: DEXAMETHASONE\TOBRAMYCIN
     Indication: Conjunctivitis allergic
     Dosage: NO TREATMENT
     Route: 065
  4. LEVOFLOXACIN [Suspect]
     Active Substance: LEVOFLOXACIN
     Indication: Conjunctivitis allergic
     Dosage: UNK
     Route: 065
  5. PRANOPROFEN [Suspect]
     Active Substance: PRANOPROFEN
     Indication: Conjunctivitis allergic
     Dosage: UNK, QID
     Route: 065

REACTIONS (6)
  - Ocular hypertension [Recovering/Resolving]
  - Conjunctivitis allergic [Recovering/Resolving]
  - Ocular hyperaemia [Recovering/Resolving]
  - Eye pruritus [Recovering/Resolving]
  - Eye swelling [Recovering/Resolving]
  - Eye pain [Recovering/Resolving]
